FAERS Safety Report 10251870 (Version 2)
Quarter: 2014Q3

REPORT INFORMATION
  Report Type: Spontaneous
  Country: CN (occurrence: CN)
  Receive Date: 20140623
  Receipt Date: 20140804
  Transmission Date: 20150326
  Serious: Yes (Other)
  Sender: FDA-Public Use
  Company Number: CN-ROCHE-1421311

PATIENT
  Sex: Male
  Weight: 79 kg

DRUGS (6)
  1. CARBOPLATIN. [Suspect]
     Active Substance: CARBOPLATIN
     Indication: THERAPEUTIC PROCEDURE
     Route: 041
     Dates: start: 20131105, end: 20131106
  2. CARBOPLATIN. [Suspect]
     Active Substance: CARBOPLATIN
     Route: 041
     Dates: start: 20131007, end: 20131008
  3. PACLITAXEL. [Suspect]
     Active Substance: PACLITAXEL
     Route: 041
     Dates: start: 20131007, end: 20131008
  4. BEVACIZUMAB [Suspect]
     Active Substance: BEVACIZUMAB
     Route: 041
     Dates: start: 20131007, end: 20131008
  5. BEVACIZUMAB [Suspect]
     Active Substance: BEVACIZUMAB
     Indication: THERAPEUTIC PROCEDURE
     Route: 042
     Dates: start: 20131105, end: 20131106
  6. PACLITAXEL. [Suspect]
     Active Substance: PACLITAXEL
     Indication: THERAPEUTIC PROCEDURE
     Route: 041
     Dates: start: 20131105, end: 20131106

REACTIONS (2)
  - Bone marrow failure [Not Recovered/Not Resolved]
  - Epistaxis [Recovered/Resolved]
